FAERS Safety Report 25089998 (Version 1)
Quarter: 2025Q1

REPORT INFORMATION
  Report Type: Spontaneous
  Country: NL (occurrence: NL)
  Receive Date: 20250318
  Receipt Date: 20250318
  Transmission Date: 20250409
  Serious: Yes (Other)
  Sender: CHATTEM
  Company Number: None

PATIENT
  Age: 12 Week
  Sex: Male
  Weight: 4.9 kg

DRUGS (2)
  1. TRIAMCINOLONE ACETONIDE [Suspect]
     Active Substance: TRIAMCINOLONE ACETONIDE
     Indication: Eczema
     Route: 003
     Dates: start: 20250217
  2. HYDROCORTISONE [Suspect]
     Active Substance: HYDROCORTISONE
     Indication: Eczema
     Route: 003
     Dates: start: 20250130

REACTIONS (1)
  - Weight gain poor [Not Recovered/Not Resolved]
